FAERS Safety Report 7702299-2 (Version None)
Quarter: 2011Q3

REPORT INFORMATION
  Report Type: 
  Country: None (occurrence: None)
  Receive Date: 20110822
  Receipt Date: 20110812
  Transmission Date: 20111222
  Serious: Yes (Other)
  Sender: FDA-Public Use
  Company Number: US-ASTRAZENECA-2011SE48661

PATIENT
  Sex: Female

DRUGS (3)
  1. TENORMIN [Suspect]
  2. NORVASC [Suspect]
  3. VASOTEC [Suspect]

REACTIONS (2)
  - GLUCOSE TOLERANCE IMPAIRED [None]
  - MEMORY IMPAIRMENT [None]
